FAERS Safety Report 25739425 (Version 1)
Quarter: 2025Q3

REPORT INFORMATION
  Report Type: Spontaneous
  Country: EU (occurrence: EU)
  Receive Date: 20250829
  Receipt Date: 20250829
  Transmission Date: 20251021
  Serious: Yes (Hospitalization)
  Sender: RANBAXY
  Company Number: EU-AEMPS-1669196

PATIENT
  Age: 42 Year
  Sex: Female

DRUGS (2)
  1. ATORVASTATIN [Suspect]
     Active Substance: ATORVASTATIN
     Indication: Dyslipidaemia
     Dosage: 40 MILLIGRAM, QD, 1 TABLET EVERY 24H
     Route: 048
     Dates: start: 20241010, end: 20241120
  2. AMOXICILLIN\CLAVULANIC ACID [Suspect]
     Active Substance: AMOXICILLIN\CLAVULANIC ACID
     Indication: Respiratory tract infection
     Dosage: 1 DOSAGE FORM, TID, EVERY 8 HOURS ORAL
     Route: 048
     Dates: start: 20241011, end: 20241018

REACTIONS (1)
  - Hepatitis cholestatic [Not Recovered/Not Resolved]

NARRATIVE: CASE EVENT DATE: 20241115
